FAERS Safety Report 19796922 (Version 1)
Quarter: 2021Q3

REPORT INFORMATION
  Report Type: Spontaneous
  Country: US (occurrence: US)
  Receive Date: 20210904
  Receipt Date: 20210904
  Transmission Date: 20211014
  Serious: Yes (Life-Threatening, Disabling)
  Sender: FDA-Public Use
  Company Number: None

PATIENT
  Age: 41 Year
  Sex: Female
  Weight: 76.5 kg

DRUGS (2)
  1. RANITIDINE TABLETS 150MG [Suspect]
     Active Substance: RANITIDINE HYDROCHLORIDE
     Indication: PRODUCT USED FOR UNKNOWN INDICATION
     Dosage: QUANTITY:60 TABLET(S);?
     Dates: start: 20181204, end: 20191208
  2. CLOBETASOL OINTMENT [Concomitant]
     Active Substance: CLOBETASOL

REACTIONS (9)
  - Skin discolouration [None]
  - Upper-airway cough syndrome [None]
  - Oropharyngeal pain [None]
  - Dyspnoea [None]
  - Neck pain [None]
  - Chest pain [None]
  - Ear pain [None]
  - Dysphagia [None]
  - Discomfort [None]

NARRATIVE: CASE EVENT DATE: 20200520
